FAERS Safety Report 5994133-6 (Version None)
Quarter: 2008Q4

REPORT INFORMATION
  Report Type: 
  Country: None (occurrence: None)
  Receive Date: 20081212
  Receipt Date: 20081209
  Transmission Date: 20090506
  Serious: Yes (Hospitalization)
  Sender: FDA-Public Use
  Company Number: US-BRISTOL-MYERS SQUIBB COMPANY-14438261

PATIENT
  Age: 58 Year
  Sex: Male
  Weight: 55 kg

DRUGS (2)
  1. CISPLATIN [Suspect]
     Indication: HEAD AND NECK CANCER
     Dosage: START DATE OF FIRST COURSE:02SEP08.
     Dates: start: 20080923, end: 20080923
  2. RADIATION THERAPY [Suspect]
     Indication: HEAD AND NECK CANCER
     Dosage: LAST TREATMENT: 10OCT08, TOTAL DOSE:70 GRAY; EXTERNAL BEAM,IMRT;FRACTIONS=35,ELASPSED DAYS=39.
     Dates: start: 20080902, end: 20080902

REACTIONS (3)
  - DEHYDRATION [None]
  - DYSPHAGIA [None]
  - NAUSEA [None]
